FAERS Safety Report 15167336 (Version 1)
Quarter: 2018Q3

REPORT INFORMATION
  Report Type: Spontaneous
  Country: US (occurrence: US)
  Receive Date: 20180719
  Receipt Date: 20180719
  Transmission Date: 20181010
  Serious: Yes (Other)
  Sender: FDA-Public Use
  Company Number: US-MYLANLABS-2018M1055349

PATIENT
  Age: 25 Year
  Sex: Female

DRUGS (1)
  1. VALPROIC ACID. [Suspect]
     Active Substance: VALPROIC ACID
     Indication: EPILEPSY
     Dosage: UNK

REACTIONS (4)
  - 3-hydroxyacetyl-coenzyme A dehydrogenase deficiency [Unknown]
  - Myalgia [Unknown]
  - Toxicity to various agents [Unknown]
  - Musculoskeletal disorder [Unknown]
